FAERS Safety Report 8310510-2 (Version None)
Quarter: 2012Q2

REPORT INFORMATION
  Report Type: 
  Country: None (occurrence: None)
  Receive Date: 20120425
  Receipt Date: 20120419
  Transmission Date: 20120825
  Serious: Yes (Hospitalization)
  Sender: FDA-Public Use
  Company Number: CN-JNJFOC-20120408988

PATIENT
  Age: 25 Year
  Sex: Male

DRUGS (2)
  1. TYLENOL COLD [Suspect]
     Route: 048
  2. TYLENOL COLD [Suspect]
     Indication: NASOPHARYNGITIS
     Route: 048
     Dates: start: 20120401, end: 20120401

REACTIONS (2)
  - COMA [None]
  - HEPATORENAL SYNDROME [None]
